FAERS Safety Report 25601718 (Version 1)
Quarter: 2025Q3

REPORT INFORMATION
  Report Type: Spontaneous
  Country: IL (occurrence: IL)
  Receive Date: 20250724
  Receipt Date: 20250724
  Transmission Date: 20251021
  Serious: Yes (Other)
  Sender: PFIZER
  Company Number: IL-PFIZER INC-PV202500088676

PATIENT
  Age: 49 Year
  Sex: Male

DRUGS (3)
  1. LORLATINIB [Suspect]
     Active Substance: LORLATINIB
  2. LORLATINIB [Suspect]
     Active Substance: LORLATINIB
  3. LORLATINIB [Suspect]
     Active Substance: LORLATINIB

REACTIONS (1)
  - Hallucination [Unknown]
